FAERS Safety Report 8280349-5 (Version None)
Quarter: 2012Q2

REPORT INFORMATION
  Report Type: 
  Country: None (occurrence: None)
  Receive Date: 20120412
  Receipt Date: 20120105
  Transmission Date: 20120825
  Serious: No
  Sender: FDA-Public Use
  Company Number: US-ASTRAZENECA-2011SE77444

PATIENT
  Age: 66 Year
  Sex: Female
  Weight: 68 kg

DRUGS (5)
  1. MYLANTA [Concomitant]
  2. NEXIUM [Suspect]
     Indication: GASTROOESOPHAGEAL REFLUX DISEASE
     Route: 048
  3. ZANTAC [Concomitant]
  4. ACIPHEX [Concomitant]
  5. CALCIUM CARBONATE [Concomitant]

REACTIONS (6)
  - DRUG DOSE OMISSION [None]
  - HAEMATEMESIS [None]
  - REGURGITATION [None]
  - VOCAL CORD DISORDER [None]
  - THROAT IRRITATION [None]
  - WEIGHT DECREASED [None]
